FAERS Safety Report 9375540 (Version 2)
Quarter: 2013Q3

REPORT INFORMATION
  Report Type: Report from Study
  Country: US (occurrence: US)
  Receive Date: 20130628
  Receipt Date: 20130802
  Transmission Date: 20140515
  Serious: Yes (Other)
  Sender: FDA-Public Use
  Company Number: US-US-EMD SERONO, INC.-7220155

PATIENT
  Age: 64 Year
  Sex: Female

DRUGS (2)
  1. REBIF [Suspect]
     Indication: PRODUCT USED FOR UNKNOWN INDICATION
     Route: 058
     Dates: start: 20040512
  2. REBIF [Suspect]
     Route: 058
     Dates: start: 201307

REACTIONS (4)
  - Skin lesion [Recovered/Resolved]
  - Hypertension [Not Recovered/Not Resolved]
  - Tooth disorder [Unknown]
  - Vision blurred [Not Recovered/Not Resolved]
